FAERS Safety Report 5729161-9 (Version None)
Quarter: 2008Q2

REPORT INFORMATION
  Report Type: 
  Country: None (occurrence: None)
  Receive Date: 20080506
  Receipt Date: 20080426
  Transmission Date: 20081010
  Serious: Yes (Hospitalization)
  Sender: FDA-Public Use
  Company Number: BR-ABBOTT-08P-020-0449291-00

PATIENT
  Sex: Male
  Weight: 82 kg

DRUGS (9)
  1. HUMIRA [Suspect]
     Indication: JUVENILE ARTHRITIS
     Dosage: 1 APPLICATION EVERY 14 DAYS
     Route: 058
     Dates: start: 20060501, end: 20080101
  2. DICLOFENAC [Interacting]
     Indication: PAIN
  3. PREDNISONE [Interacting]
     Indication: RHEUMATOID ARTHRITIS
     Dosage: 10 MG DAILY
     Route: 048
  4. METHADONE HYDROCHLORIDE [Interacting]
     Indication: PAIN
     Route: 048
  5. METHADONE HYDROCHLORIDE [Interacting]
     Route: 048
  6. LEFLUNOMIDE [Concomitant]
     Indication: JUVENILE ARTHRITIS
  7. OMEPRAZOLE [Concomitant]
     Indication: PROPHYLAXIS AGAINST GASTROINTESTINAL ULCER
  8. TENOXICAM [Concomitant]
     Indication: JUVENILE ARTHRITIS
     Dosage: EVERY 12 HOURS
  9. UNKNOWN [Concomitant]
     Indication: SLEEP DISORDER

REACTIONS (11)
  - BLOOD URINE PRESENT [None]
  - BONE EROSION [None]
  - DEVICE RELATED INFECTION [None]
  - DISLOCATION OF JOINT PROSTHESIS [None]
  - DIZZINESS [None]
  - DRUG INTERACTION [None]
  - LIGAMENT RUPTURE [None]
  - PAIN [None]
  - SOMNOLENCE [None]
  - STAPHYLOCOCCAL INFECTION [None]
  - URINARY RETENTION [None]
